FAERS Safety Report 10064432 (Version 1)
Quarter: 2014Q2

REPORT INFORMATION
  Report Type: Spontaneous
  Country: US (occurrence: None)
  Receive Date: 20140407
  Receipt Date: 20140407
  Transmission Date: 20141212
  Serious: Yes (Other)
  Sender: FDA-Public Use
  Company Number: None

PATIENT
  Age: 46 Year
  Sex: Female
  Weight: 66.23 kg

DRUGS (1)
  1. MIRVASO [Suspect]
     Indication: ROSACEA
     Dosage: 0.33, 5 PEA SIZE AMOUNTS, ONCE DAILY
     Dates: start: 20140321, end: 20140331

REACTIONS (2)
  - Flushing [None]
  - Hot flush [None]
